FAERS Safety Report 4946108-3 (Version None)
Quarter: 2006Q1

REPORT INFORMATION
  Report Type: 
  Country: None (occurrence: None)
  Receive Date: 20060316
  Receipt Date: 20051230
  Transmission Date: 20060701
  Serious: Yes (Life-Threatening, Hospitalization)
  Sender: FDA-Public Use
  Company Number: US-MERCK-0601USA00284

PATIENT
  Sex: Male

DRUGS (2)
  1. ZOCOR [Suspect]
     Indication: BLOOD CHOLESTEROL INCREASED
     Route: 048
     Dates: start: 20010401, end: 20040901
  2. ZOCOR [Suspect]
     Route: 048
     Dates: start: 20040101

REACTIONS (8)
  - DERMATOMYOSITIS [None]
  - JOINT SWELLING [None]
  - PNEUMONIA [None]
  - RASH [None]
  - RESPIRATORY ARREST [None]
  - RESPIRATORY FAILURE [None]
  - RHABDOMYOLYSIS [None]
  - WEIGHT DECREASED [None]
